FAERS Safety Report 12948144 (Version 1)
Quarter: 2016Q4

REPORT INFORMATION
  Report Type: Spontaneous
  Country: CH (occurrence: CH)
  Receive Date: 20161116
  Receipt Date: 20161116
  Transmission Date: 20170207
  Serious: Yes (Other)
  Sender: FDA-Public Use
  Company Number: CH-TEVA-710514ISR

PATIENT
  Age: 41 Year
  Sex: Male

DRUGS (4)
  1. CISPLATIN. [Suspect]
     Active Substance: CISPLATIN
     Indication: CHEMOTHERAPY
     Route: 065
     Dates: start: 201501
  2. VINORELBINE [Suspect]
     Active Substance: VINORELBINE\VINORELBINE TARTRATE
     Indication: CHEMOTHERAPY
     Route: 065
     Dates: start: 201501, end: 201504
  3. CARBOPLATIN. [Suspect]
     Active Substance: CARBOPLATIN
     Indication: CHEMOTHERAPY
     Route: 065
     Dates: end: 201504
  4. NIVOLUMAB [Concomitant]
     Active Substance: NIVOLUMAB
     Indication: LUNG NEOPLASM MALIGNANT
     Route: 065
     Dates: start: 201507, end: 201601

REACTIONS (5)
  - Metastasis [Unknown]
  - Pneumonia [Unknown]
  - Asthenia [Unknown]
  - Sepsis [Unknown]
  - Nausea [Unknown]

NARRATIVE: CASE EVENT DATE: 201506
